FAERS Safety Report 7941257-X (Version None)
Quarter: 2011Q4

REPORT INFORMATION
  Report Type: 
  Country: None (occurrence: None)
  Receive Date: 20111128
  Receipt Date: 20111116
  Transmission Date: 20120403
  Serious: Yes (Other)
  Sender: FDA-Public Use
  Company Number: US-UCBSA-034003

PATIENT
  Age: 9 Day
  Sex: Male
  Weight: 2.948 kg

DRUGS (11)
  1. KEPPRA XR [Suspect]
     Indication: EPILEPSY
     Route: 064
     Dates: end: 20100301
  2. MULTI-VITAMIN [Concomitant]
     Route: 064
  3. KEPPRA XR [Suspect]
     Route: 064
     Dates: start: 20100426, end: 20100101
  4. BIOTIN [Concomitant]
     Indication: VITAMIN SUPPLEMENTATION
     Route: 064
     Dates: start: 20091101, end: 20100301
  5. ROTA VACCINE [Concomitant]
     Route: 048
     Dates: start: 20110214
  6. MULTI-VITAMINS [Concomitant]
     Indication: PREGNANCY
     Route: 064
     Dates: start: 20100201, end: 20100101
  7. ROTA VACCINE [Concomitant]
     Route: 048
     Dates: start: 20101013
  8. TOPIRAMATE [Concomitant]
     Indication: MIGRAINE
     Route: 064
  9. AMBIEN [Concomitant]
     Dosage: QHS
     Route: 064
  10. KEPPRA XR [Suspect]
     Route: 064
     Dates: start: 20100301
  11. ROTA VACCINE [Concomitant]
     Route: 048
     Dates: start: 20110418

REACTIONS (11)
  - URACHAL ABNORMALITY [None]
  - DERMATITIS [None]
  - RASH [None]
  - UPPER RESPIRATORY TRACT INFECTION [None]
  - ACNE [None]
  - SICKLE CELL TRAIT [None]
  - LACTOSE INTOLERANCE [None]
  - GASTROOESOPHAGEAL REFLUX DISEASE [None]
  - OTITIS MEDIA [None]
  - FOETAL EXPOSURE DURING PREGNANCY [None]
  - ADVERSE EVENT [None]
